FAERS Safety Report 14495190 (Version 1)
Quarter: 2018Q1

REPORT INFORMATION
  Report Type: Spontaneous
  Country: US (occurrence: US)
  Receive Date: 20180206
  Receipt Date: 20180206
  Transmission Date: 20180509
  Serious: No
  Sender: FDA-Public Use
  Company Number: US-ACTELION-A-NJ2018-167190

PATIENT
  Age: 61 Year
  Sex: Female

DRUGS (7)
  1. NIFEDICAL XL [Concomitant]
     Active Substance: NIFEDIPINE
     Dosage: 30 MG, QD
     Route: 048
     Dates: start: 20140820
  2. CALCIUM CITRATE D [Concomitant]
     Dosage: 1 CAP, BID
     Route: 048
     Dates: start: 20140820
  3. CYMBALTA [Concomitant]
     Active Substance: DULOXETINE HYDROCHLORIDE
     Dosage: 60 MG, QD
     Route: 048
     Dates: start: 20140820
  4. ALEVE [Concomitant]
     Active Substance: NAPROXEN SODIUM
     Dosage: 220 MG, AS DIRECTED
     Route: 048
     Dates: start: 20090713
  5. CHLORDIAZEPOXIDE HCL [Concomitant]
     Active Substance: CHLORDIAZEPOXIDE HYDROCHLORIDE
     Dosage: 1 DOSE AS DIRECTED
     Dates: start: 20090713
  6. ZAVESCA [Suspect]
     Active Substance: MIGLUSTAT
     Indication: LIPID METABOLISM DISORDER
     Dosage: 100 MG, TID
     Route: 048
     Dates: start: 20120406
  7. FIBER [Concomitant]
     Active Substance: PSYLLIUM HUSK
     Dosage: 1 DOSE AS DIRECTED
     Route: 048
     Dates: start: 20150918

REACTIONS (1)
  - Dementia [Unknown]
